FAERS Safety Report 5109699-8 (Version None)
Quarter: 2006Q3

REPORT INFORMATION
  Report Type: 
  Country: None (occurrence: None)
  Receive Date: 20060918
  Receipt Date: 20060905
  Transmission Date: 20061208
  Serious: No
  Sender: FDA-Public Use
  Company Number: 06H-161-0310053-00

PATIENT
  Age: 6 Year
  Sex: Female

DRUGS (6)
  1. DEXMEDETOMIDINE [Suspect]
     Indication: MAINTENANCE OF ANAESTHESIA
     Dosage: 0.7 MCG/KG/HR, INFUSION
  2. DEXMEDETOMIDINE [Concomitant]
  3. D5 0.3% (SODIUM CHLORIDE) [Concomitant]
  4. ANESTHETIC CREAM              (ANAESTHETICS FOR TOPICAL USE) [Concomitant]
  5. MIDAZOLAM HCL [Concomitant]
  6. KETAMINE              (KETAMINE) [Concomitant]

REACTIONS (1)
  - CONVULSION [None]
